FAERS Safety Report 8515691-3 (Version None)
Quarter: 2012Q3

REPORT INFORMATION
  Report Type: 
  Country: None (occurrence: None)
  Receive Date: 20120717
  Receipt Date: 20120713
  Transmission Date: 20120928
  Serious: Yes (Hospitalization)
  Sender: FDA-Public Use
  Company Number: PHHY2012DE007215

PATIENT
  Sex: Male

DRUGS (2)
  1. IMATINIB MESYLATE [Suspect]
     Dosage: 400 MG, QW3
     Route: 048
  2. IMATINIB MESYLATE [Suspect]
     Indication: CHRONIC MYELOID LEUKAEMIA
     Dosage: 400 MG, DAILY
     Route: 048

REACTIONS (2)
  - HYDROCELE [None]
  - THROMBOCYTOPENIA [None]
